FAERS Safety Report 7676735-4 (Version None)
Quarter: 2011Q3

REPORT INFORMATION
  Report Type: 
  Country: None (occurrence: None)
  Receive Date: 20110811
  Receipt Date: 20110808
  Transmission Date: 20111222
  Serious: Yes (Other)
  Sender: FDA-Public Use
  Company Number: FR-BRISTOL-MYERS SQUIBB COMPANY-15855604

PATIENT
  Age: 35 Year
  Sex: Female
  Weight: 52 kg

DRUGS (5)
  1. CYMBALTA [Concomitant]
     Dosage: FEW MONTHS 1DF=2 DOSES
     Dates: start: 20101104
  2. XANAX [Concomitant]
     Dosage: FEW MONTHS
  3. ABILIFY [Suspect]
     Indication: MOOD SWINGS
     Dosage: 1 DOSE.DRUG INTERRUPTED AND REINTRODUCED ON 06JUN10 THYMOREGULATOR TREATMENT
     Route: 048
     Dates: start: 20110506
  4. ZOLPIDEM [Concomitant]
     Dosage: FEW MONTHS 1 DF = 1 DOSE PER DAY
     Dates: start: 20100922
  5. ABILIFY [Suspect]
     Indication: DEPRESSION
     Dosage: 1 DOSE.DRUG INTERRUPTED AND REINTRODUCED ON 06JUN10 THYMOREGULATOR TREATMENT
     Route: 048
     Dates: start: 20110506

REACTIONS (2)
  - RESPIRATORY DISORDER [None]
  - DYSPNOEA [None]
